FAERS Safety Report 9556392 (Version 1)
Quarter: 2013Q3

REPORT INFORMATION
  Report Type: Spontaneous
  Country: RS (occurrence: RS)
  Receive Date: 20130926
  Receipt Date: 20130926
  Transmission Date: 20140515
  Serious: Yes (Other)
  Sender: FDA-Public Use
  Company Number: RS-TEVA-432728ISR

PATIENT
  Sex: Male

DRUGS (1)
  1. FOSINOPRIL [Suspect]
     Dosage: 40 MILLIGRAM DAILY;
     Route: 048

REACTIONS (3)
  - Abasia [Unknown]
  - Head discomfort [Unknown]
  - Dizziness [Unknown]
